FAERS Safety Report 9630113 (Version 1)
Quarter: 2013Q4

REPORT INFORMATION
  Report Type: Report from Study
  Country: US (occurrence: US)
  Receive Date: 20131017
  Receipt Date: 20131017
  Transmission Date: 20140711
  Serious: No
  Sender: FDA-Public Use
  Company Number: US-ALEXION-A201302573

PATIENT
  Sex: 0

DRUGS (3)
  1. SOLIRIS [Suspect]
     Indication: HAEMOLYTIC URAEMIC SYNDROME
     Dosage: UNK
     Route: 042
  2. LEVAQUIN [Concomitant]
     Dosage: UNK
     Dates: start: 20111217
  3. AMLODIPINE [Concomitant]
     Dosage: 10 MG, QD
     Dates: start: 20111230

REACTIONS (4)
  - Paraesthesia [Unknown]
  - Hot flush [Unknown]
  - Neck pain [Unknown]
  - Headache [Unknown]
